FAERS Safety Report 8062766-1 (Version None)
Quarter: 2012Q1

REPORT INFORMATION
  Report Type: 
  Country: None (occurrence: None)
  Receive Date: 20120106
  Receipt Date: 20111227
  Transmission Date: 20120608
  Serious: Yes (Other)
  Sender: FDA-Public Use
  Company Number: 2010027000

PATIENT
  Sex: Female
  Weight: 89.3586 kg

DRUGS (33)
  1. HIZENTRA [Suspect]
  2. HIZENTRA [Suspect]
     Indication: CONGENITAL HYPOGAMMAGLOBULINAEMIA
     Dosage: (15 G 1X/WEEK, INFUSED IN 4 SITES OVER 1-2 HOURS WEEKLY SUBCUTANEOUS), (SUBCUTANEOUS), (SUBCUTANEOUS
     Route: 058
     Dates: start: 20110308
  3. HIZENTRA [Suspect]
     Indication: CONGENITAL HYPOGAMMAGLOBULINAEMIA
     Dosage: (15 G 1X/WEEK, INFUSED IN 4 SITES OVER 1-2 HOURS WEEKLY SUBCUTANEOUS), (SUBCUTANEOUS), (SUBCUTANEOUS
     Route: 058
     Dates: start: 20110809
  4. HIZENTRA [Suspect]
     Indication: CONGENITAL HYPOGAMMAGLOBULINAEMIA
     Dosage: (15 G 1X/WEEK, INFUSED IN 4 SITES OVER 1-2 HOURS WEEKLY SUBCUTANEOUS), (SUBCUTANEOUS), (SUBCUTANEOUS
     Route: 058
     Dates: start: 20110401
  5. HIZENTRA [Suspect]
     Indication: CONGENITAL HYPOGAMMAGLOBULINAEMIA
     Dosage: (15 G 1X/WEEK, INFUSED IN 4 SITES OVER 1-2 HOURS WEEKLY SUBCUTANEOUS), (SUBCUTANEOUS), (SUBCUTANEOUS
     Route: 058
     Dates: start: 20101022
  6. INSULIN (INSULIN) ( TO UNKNOWN) [Concomitant]
  7. FLUTICASONE PROPIONATE [Concomitant]
  8. ALBUTEROL [Concomitant]
  9. SPIRIVA [Concomitant]
  10. ASPIRIN [Concomitant]
  11. VITAMIN D [Concomitant]
  12. IBUPROFEN [Concomitant]
  13. HIZENTRA [Suspect]
  14. HIZENTRA [Suspect]
  15. VICODIN (VICODIN) ( TO UNKNOWN) [Concomitant]
  16. PREDNISONE (PREDNISONE) ( TO UNKNOWN) [Concomitant]
  17. NEXIUM [Concomitant]
  18. BIOTIN (BIOTIN) [Concomitant]
  19. HIZENTRA [Suspect]
  20. XOLAIR (OMALIZUMAB) ( TO UNKNOWN) [Concomitant]
  21. CHROMAGEN (CHROMAGEN /00555001/) [Concomitant]
  22. CRESTOR (ROSUVASTATIN) ( TO UNKNOWN) [Concomitant]
  23. PROMETHAZINE [Concomitant]
  24. ATROVENT [Concomitant]
  25. TUSSIN (GUAIFENESIN) [Concomitant]
  26. OMEGA 3-6-9 (LIPITAC) [Concomitant]
  27. ADVAIR DISKUS 100/50 [Concomitant]
  28. FLONASE [Concomitant]
  29. HIZENTRA [Suspect]
  30. NAPROXEN (NAPROXEN) ( TO UNKNOWN) [Concomitant]
  31. XANAX (ALPRAZOLAM) ( TO UNKNOWN) [Concomitant]
  32. JANUMET (METFORMIN) [Concomitant]
  33. METANX (ELEVIT VITAMINE B9) [Concomitant]

REACTIONS (8)
  - RESPIRATORY TRACT INFECTION [None]
  - PETECHIAE [None]
  - DRY SKIN [None]
  - INFUSION SITE REACTION [None]
  - PRURITUS [None]
  - PAIN IN EXTREMITY [None]
  - HOT FLUSH [None]
  - ECZEMA [None]
